FAERS Safety Report 7234621-8 (Version None)
Quarter: 2011Q1

REPORT INFORMATION
  Report Type: 
  Country: None (occurrence: None)
  Receive Date: 20110120
  Receipt Date: 20110110
  Transmission Date: 20110831
  Serious: Yes (Hospitalization)
  Sender: FDA-Public Use
  Company Number: US-BIOGENIDEC-2011BI001356

PATIENT
  Age: 69 Year
  Sex: Female

DRUGS (2)
  1. AVONEX [Suspect]
     Indication: MULTIPLE SCLEROSIS
     Route: 030
     Dates: start: 20071115
  2. AVONEX [Suspect]
     Route: 030
     Dates: start: 20010905, end: 20040801

REACTIONS (3)
  - LOCALISED INFECTION [None]
  - BLISTER [None]
  - DIABETES MELLITUS [None]
